FAERS Safety Report 13452621 (Version 4)
Quarter: 2017Q3

REPORT INFORMATION
  Report Type: Report from Study
  Country: CA (occurrence: CA)
  Receive Date: 20170418
  Receipt Date: 20170726
  Transmission Date: 20171127
  Serious: Yes (Hospitalization)
  Sender: FDA-Public Use
  Company Number: CA-PFIZER INC-2017168595

PATIENT
  Age: 30 Year
  Sex: Female

DRUGS (6)
  1. NOVOHYDRAZIDE [Concomitant]
     Active Substance: HYDROCHLOROTHIAZIDE
     Dosage: 25 OR 35 MG, DAILY
     Dates: start: 19940304
  2. MIFEGYNE [Suspect]
     Active Substance: MIFEPRISTONE
     Indication: BREAST CANCER
     Dosage: 200 MG, 1X/DAY
     Route: 048
     Dates: start: 19940303
  3. LEVOTHYROXINE SODIUM. [Concomitant]
     Active Substance: LEVOTHYROXINE SODIUM
     Dosage: 0.1 MG, DAILY
     Dates: start: 19940825
  4. VOLTAREN [Concomitant]
     Active Substance: DICLOFENAC SODIUM
     Dosage: UNK
  5. CYTOTEC [Concomitant]
     Active Substance: MISOPROSTOL
     Dosage: 100 MG, DAILY
     Dates: start: 19940908
  6. TYLENOL [Concomitant]
     Active Substance: ACETAMINOPHEN
     Dosage: 100 MG, DAILY

REACTIONS (1)
  - Hysterectomy [Recovered/Resolved]

NARRATIVE: CASE EVENT DATE: 19950227
